FAERS Safety Report 7516133-7 (Version None)
Quarter: 2011Q2

REPORT INFORMATION
  Report Type: 
  Country: None (occurrence: None)
  Receive Date: 20110601
  Receipt Date: 20110524
  Transmission Date: 20111010
  Serious: Yes (Hospitalization, Other)
  Sender: FDA-Public Use
  Company Number: US-ASTRAZENECA-2010SE30384

PATIENT
  Age: 84 Year
  Sex: Female

DRUGS (1)
  1. NEXIUM [Suspect]
     Route: 048

REACTIONS (8)
  - RETINAL DEGENERATION [None]
  - CARDIAC PACEMAKER INSERTION [None]
  - GASTROOESOPHAGEAL REFLUX DISEASE [None]
  - AMBLYOPIA [None]
  - COLOBOMA [None]
  - VISUAL IMPAIRMENT [None]
  - BLADDER CANCER [None]
  - VITREOUS DETACHMENT [None]
